FAERS Safety Report 6116149-1 (Version None)
Quarter: 2009Q1

REPORT INFORMATION
  Report Type: 
  Country: None (occurrence: None)
  Receive Date: 20090314
  Receipt Date: 20081202
  Transmission Date: 20090719
  Serious: No
  Sender: FDA-Public Use
  Company Number: US-ABBOTT-08P-163-0490596-00

PATIENT
  Sex: Female
  Weight: 70.37 kg

DRUGS (1)
  1. HUMIRA [Suspect]
     Indication: COLITIS ULCERATIVE
     Route: 058
     Dates: start: 20080801

REACTIONS (7)
  - DYSPNOEA [None]
  - HYPERSENSITIVITY [None]
  - LACRIMATION INCREASED [None]
  - PRODUCTIVE COUGH [None]
  - RHINORRHOEA [None]
  - SINUS HEADACHE [None]
  - SNEEZING [None]
